FAERS Safety Report 22359373 (Version 1)
Quarter: 2023Q2

REPORT INFORMATION
  Report Type: Spontaneous
  Country: FR (occurrence: FR)
  Receive Date: 20230524
  Receipt Date: 20230524
  Transmission Date: 20230722
  Serious: Yes (Other)
  Sender: FDA-Public Use
  Company Number: FR-002147023-NVSC2023FR109912

PATIENT
  Age: 66 Year
  Sex: Male

DRUGS (4)
  1. ONDANSETRON [Suspect]
     Active Substance: ONDANSETRON
     Indication: Nausea
     Dosage: 32 MG, QD (VIAL)
     Route: 042
  2. ONDANSETRON [Suspect]
     Active Substance: ONDANSETRON
     Dosage: UNK, PRN (WHEN NECESSARY)
     Route: 048
  3. ONDANSETRON [Suspect]
     Active Substance: ONDANSETRON
     Dosage: 8 MG, QD (WITH POSOLOGY)
     Route: 065
  4. ONDANSETRON [Suspect]
     Active Substance: ONDANSETRON
     Dosage: 4 ML, QD (4 VIALS)
     Route: 042

REACTIONS (5)
  - Overdose [Unknown]
  - Visual impairment [Unknown]
  - Petechiae [Unknown]
  - Product administration error [Unknown]
  - Off label use [Unknown]
